FAERS Safety Report 13555632 (Version 1)
Quarter: 2017Q2

REPORT INFORMATION
  Report Type: Report from Study
  Country: NL (occurrence: NL)
  Receive Date: 20170517
  Receipt Date: 20170517
  Transmission Date: 20170830
  Serious: No
  Sender: FDA-Public Use
  Company Number: NL-JNJFOC-20161125072

PATIENT
  Age: 62 Year
  Sex: Male

DRUGS (2)
  1. USTEKINUMAB [Suspect]
     Active Substance: USTEKINUMAB
     Indication: PSORIASIS
     Route: 058
     Dates: end: 20170426
  2. USTEKINUMAB [Suspect]
     Active Substance: USTEKINUMAB
     Indication: PSORIASIS
     Route: 058
     Dates: start: 20100303

REACTIONS (3)
  - Onychomycosis [Unknown]
  - Fungal skin infection [Unknown]
  - Bowen^s disease [Unknown]

NARRATIVE: CASE EVENT DATE: 20161109
